FAERS Safety Report 6012869-8 (Version None)
Quarter: 2008Q4

REPORT INFORMATION
  Report Type: 
  Country: None (occurrence: None)
  Receive Date: 20081219
  Receipt Date: 20081215
  Transmission Date: 20090506
  Serious: Yes (Hospitalization)
  Sender: FDA-Public Use
  Company Number: JP-SP-2008-03667

PATIENT
  Age: 50 Year
  Sex: Male

DRUGS (1)
  1. IMMUCYST [Suspect]
     Indication: CARCINOMA IN SITU OF BLADDER
     Route: 043
     Dates: start: 20080930, end: 20081104

REACTIONS (3)
  - ARTHRITIS [None]
  - CONJUNCTIVITIS [None]
  - REITER'S SYNDROME [None]
